FAERS Safety Report 4505969-2 (Version None)
Quarter: 2004Q4

REPORT INFORMATION
  Report Type: 
  Country: None (occurrence: None)
  Receive Date: 20041025
  Receipt Date: 20031002
  Transmission Date: 20050328
  Serious: Yes (Other)
  Sender: FDA-Public Use
  Company Number: US-JNJFOC-20031001159

PATIENT
  Age: 68 Year
  Sex: Male
  Weight: 106.5953 kg

DRUGS (8)
  1. REMICADE [Suspect]
     Indication: RHEUMATOID ARTHRITIS
     Dosage: INTRAVENOUS
     Route: 042
     Dates: start: 20030928
  2. COMBIVENT [Concomitant]
  3. CELEBREX [Concomitant]
  4. ISORBID (ISOSORBIDE DINITRATE) [Concomitant]
  5. PLAQUENIL [Concomitant]
  6. PREDNISONE [Concomitant]
  7. FOSAMAX [Concomitant]
  8. PRAVACHOL [Concomitant]

REACTIONS (2)
  - HYPERTENSION [None]
  - PULMONARY OEDEMA [None]
